FAERS Safety Report 9525094 (Version 1)
Quarter: 2013Q1

REPORT INFORMATION
  Report Type: Spontaneous
  Country: US (occurrence: None)
  Receive Date: 20130313
  Receipt Date: 20130313
  Transmission Date: 20140127
  Serious: No
  Sender: FDA-Public Use
  Company Number: 1000030776

PATIENT
  Age: 58 Year
  Sex: Female

DRUGS (3)
  1. SAVELLA 12.5 MG FOREST PHARMACEUTICALS [Suspect]
     Indication: FIBROMYALGIA
     Dosage: 12.5 MG (12.5 MG, 1 IN 1 D)
     Dates: start: 201205, end: 201205
  2. PRILOSEC [Concomitant]
  3. ATENOLOL (PREGABALIN) [Concomitant]

REACTIONS (2)
  - Hyperhidrosis [None]
  - Sunburn [None]
